FAERS Safety Report 12517446 (Version 1)
Quarter: 2016Q2

REPORT INFORMATION
  Report Type: Spontaneous
  Country: FR (occurrence: FR)
  Receive Date: 20160630
  Receipt Date: 20160630
  Transmission Date: 20160815
  Serious: Yes (Other)
  Sender: FDA-Public Use
  Company Number: FR-JNJFOC-20160623441

PATIENT
  Sex: Female

DRUGS (2)
  1. GABAPENTIN. [Suspect]
     Active Substance: GABAPENTIN
     Indication: NEURALGIA
     Route: 048
     Dates: start: 2015, end: 201606
  2. BIOGARAN [Suspect]
     Active Substance: ACETAMINOPHEN\TRAMADOL HYDROCHLORIDE
     Indication: PAIN
     Route: 048
     Dates: end: 201605

REACTIONS (17)
  - Fatigue [Not Recovered/Not Resolved]
  - Urticaria [Not Recovered/Not Resolved]
  - Dizziness [Not Recovered/Not Resolved]
  - Inner ear inflammation [Recovered/Resolved]
  - Drug withdrawal syndrome [Unknown]
  - Loose tooth [Unknown]
  - Weight increased [Not Recovered/Not Resolved]
  - Anxiety [Not Recovered/Not Resolved]
  - Dry throat [Unknown]
  - Constipation [Recovered/Resolved]
  - Noninfective gingivitis [Unknown]
  - Dry mouth [Unknown]
  - Dyspnoea [Unknown]
  - Pyrexia [Unknown]
  - Muscle spasms [Recovered/Resolved]
  - Joint lock [Unknown]
  - Food allergy [Unknown]

NARRATIVE: CASE EVENT DATE: 2015
